FAERS Safety Report 7911108-8 (Version None)
Quarter: 2011Q4

REPORT INFORMATION
  Report Type: 
  Country: None (occurrence: None)
  Receive Date: 20111109
  Receipt Date: 20111104
  Transmission Date: 20120403
  Serious: Yes (Hospitalization)
  Sender: FDA-Public Use
  Company Number: GER/GER/11/0021827

PATIENT
  Age: 41 Year
  Sex: Male

DRUGS (8)
  1. AKINETON [Suspect]
     Indication: PRODUCT USED FOR UNKNOWN INDICATION
     Dosage: 2 MG, 1/2-0-1/2, ORAL
     Route: 048
     Dates: start: 20050401
  2. CARBAMAZEPINE [Suspect]
     Indication: PRODUCT USED FOR UNKNOWN INDICATION
     Dosage: 200 MG, 1-1-0, ORAL
     Route: 048
     Dates: start: 20090301
  3. LAMOTRIGINE [Suspect]
     Indication: PRODUCT USED FOR UNKNOWN INDICATION
     Dosage: 100 MG, 1-0-2, ORAL
     Route: 048
     Dates: start: 20100601
  4. CEFUROXINE (CEFUROXIME SODIUM) [Concomitant]
  5. RISPERIDONE [Suspect]
     Indication: PRODUCT USED FOR UNKNOWN INDICATION
     Dosage: 1 MG, 1-0-1, ORAL
     Route: 048
     Dates: start: 20090301
  6. LORAZEPAM [Suspect]
     Indication: PRODUCT USED FOR UNKNOWN INDICATION
     Dosage: 1 MG, 3X1, ORAL
     Route: 048
     Dates: start: 20100601
  7. THIORIDAZINE HCL [Suspect]
     Indication: PRODUCT USED FOR UNKNOWN INDICATION
     Dosage: 100 MG, 1-1-1, ORAL
     Route: 048
     Dates: start: 20071101
  8. TAXILAN (PERAZINE) [Suspect]
     Indication: PRODUCT USED FOR UNKNOWN INDICATION
     Dosage: 100 MG, 1-0-2, ORAL
     Route: 048
     Dates: start: 20100901

REACTIONS (3)
  - ACUTE HEPATIC FAILURE [None]
  - THROMBOCYTOPENIA [None]
  - RENAL FAILURE ACUTE [None]
